FAERS Safety Report 4917030-3 (Version None)
Quarter: 2006Q1

REPORT INFORMATION
  Report Type: 
  Country: None (occurrence: None)
  Receive Date: 20060221
  Receipt Date: 20060208
  Transmission Date: 20060701
  Serious: Yes (Other)
  Sender: FDA-Public Use
  Company Number: 2006GB00238

PATIENT
  Sex: Female

DRUGS (2)
  1. LIDOCAINE [Suspect]
     Route: 051
     Dates: start: 20060111, end: 20060111
  2. DEPO-MEDRONE [Suspect]
     Route: 065
     Dates: start: 20060111, end: 20060111

REACTIONS (4)
  - SYNCOPE [None]
  - TACHYCARDIA [None]
  - TREMOR [None]
  - VOMITING [None]
